FAERS Safety Report 9004822 (Version 1)
Quarter: 2012Q4

REPORT INFORMATION
  Report Type: Spontaneous
  Country: US (occurrence: None)
  Receive Date: 20121226
  Receipt Date: 20121226
  Transmission Date: 20130627
  Serious: Yes (Hospitalization, Other)
  Sender: FDA-Public Use
  Company Number: ADR-2012-02266

PATIENT
  Sex: Female

DRUGS (3)
  1. BACLOFEN INTRATHECAL [Suspect]
  2. DILAUDID [Concomitant]
  3. BUPIVACAINE [Concomitant]

REACTIONS (4)
  - Oedema peripheral [None]
  - Device battery issue [None]
  - Oedema peripheral [None]
  - Neuralgia [None]
